FAERS Safety Report 9310200 (Version 1)
Quarter: 2013Q2

REPORT INFORMATION
  Report Type: Spontaneous
  Country: SE (occurrence: SE)
  Receive Date: 20130527
  Receipt Date: 20130527
  Transmission Date: 20140414
  Serious: Yes (Other)
  Sender: FDA-Public Use
  Company Number: SE-AMGEN-SWESP2013037323

PATIENT
  Age: 74 Year
  Sex: Female

DRUGS (22)
  1. ENBREL [Suspect]
     Indication: RHEUMATOID ARTHRITIS
     Dosage: 25 MG, UNK
     Dates: start: 20040808
  2. HYDREA [Suspect]
     Dosage: 500 MG, UNK
     Dates: start: 20130201
  3. OMEPRAZOL                          /00661201/ [Concomitant]
     Dosage: UNK
  4. METOPROLOL [Concomitant]
     Dosage: UNK
  5. FELODIPINE [Concomitant]
     Dosage: UNK
  6. CITALOPRAM [Concomitant]
     Dosage: UNK
  7. NITROLINGUAL [Concomitant]
     Dosage: UNK
  8. COSOPT [Concomitant]
     Dosage: UNK
  9. PREDNISOLON                        /00016201/ [Concomitant]
     Dosage: UNK
  10. WARAN [Concomitant]
     Dosage: 2.5 MG, UNK
  11. ISOPTO-MAXIDEX [Concomitant]
     Dosage: 1 MG/ML, UNK
  12. CALCEVITA [Concomitant]
     Dosage: UNK
  13. LAXOBERAL [Concomitant]
     Dosage: 7.5 MG/ML, UNK
  14. ALLOPURINOL [Concomitant]
     Dosage: 300 MG, UNK
  15. IMDUR [Concomitant]
     Dosage: 30 MG, UNK  SLOW RELEASE
  16. STILNOCT [Concomitant]
     Dosage: UNK
  17. VISCOTEARS [Concomitant]
     Dosage: UNK
  18. MOVICOL                            /01625101/ [Concomitant]
     Dosage: UNK
  19. OXYCONTIN [Concomitant]
     Dosage: 10 MG, UNK
  20. FURIX [Concomitant]
     Dosage: 60 MG, UNK
  21. ATACAND PLUS [Concomitant]
     Dosage: UNK
  22. OXYNORM [Concomitant]
     Dosage: 10 MG, UNK

REACTIONS (3)
  - Leukaemia [Not Recovered/Not Resolved]
  - Chronic myelomonocytic leukaemia [Unknown]
  - Nausea [Not Recovered/Not Resolved]
